FAERS Safety Report 11720663 (Version 2)
Quarter: 2015Q4

REPORT INFORMATION
  Report Type: Report from Study
  Country: NL (occurrence: NL)
  Receive Date: 20151110
  Receipt Date: 20151112
  Transmission Date: 20160304
  Serious: Yes (Death)
  Sender: FDA-Public Use
  Company Number: NL-ABBVIE-15P-114-1497058-00

PATIENT
  Sex: Male

DRUGS (1)
  1. DUODOPA [Suspect]
     Active Substance: CARBIDOPA\LEVODOPA
     Indication: PARKINSON^S DISEASE
     Dosage: 20/5MG/ML, MD: 2.0, CD: 2.2, ED: 2.0 ND: NO NIGHT DOSE
     Route: 050
     Dates: start: 20150226, end: 20150424

REACTIONS (1)
  - Non-Hodgkin^s lymphoma [Fatal]
